FAERS Safety Report 20337041 (Version 2)
Quarter: 2022Q1

REPORT INFORMATION
  Report Type: Spontaneous
  Country: US (occurrence: US)
  Receive Date: 20220114
  Receipt Date: 20220127
  Transmission Date: 20220423
  Serious: No
  Sender: FDA-Public Use
  Company Number: US-KYOWAKIRIN-2021BKK022168

PATIENT

DRUGS (4)
  1. SANCUSO [Suspect]
     Active Substance: GRANISETRON
     Indication: Prophylaxis of nausea and vomiting
     Dosage: 1 PATCH TO SKIN 24-48 PRIOR TO CHEMO (MAY LEAVE ON FOR UP TO 7 DAYS)
     Route: 062
     Dates: start: 20211221, end: 20211226
  2. SANCUSO [Suspect]
     Active Substance: GRANISETRON
     Dosage: 1 PATCH TO SKIN 24-48 PRIOR TO CHEMO (MAY LEAVE ON FOR UP TO 7 DAYS)
     Route: 062
     Dates: start: 202111, end: 2021
  3. SANCUSO [Suspect]
     Active Substance: GRANISETRON
     Dosage: 1 PATCH TO SKIN 24-48 PRIOR TO CHEMO (MAY LEAVE ON FOR UP TO 7 DAYS)
     Route: 062
     Dates: start: 201903
  4. LOMUSTINE [Concomitant]
     Active Substance: LOMUSTINE
     Indication: Product used for unknown indication
     Dosage: 1 PILL, Q 6 WEEKS
     Route: 065

REACTIONS (9)
  - Skin injury [Unknown]
  - Feeling abnormal [Unknown]
  - Skin hypertrophy [Unknown]
  - Application site pruritus [Unknown]
  - Application site discomfort [Unknown]
  - Application site erythema [Unknown]
  - Application site irritation [Unknown]
  - Application site rash [Not Recovered/Not Resolved]
  - Device material issue [Unknown]

NARRATIVE: CASE EVENT DATE: 20211201
